FAERS Safety Report 5904385-6 (Version None)
Quarter: 2008Q4

REPORT INFORMATION
  Report Type: 
  Country: None (occurrence: None)
  Receive Date: 20081001
  Receipt Date: 20080926
  Transmission Date: 20090506
  Serious: Yes (Death, Hospitalization, Other)
  Sender: FDA-Public Use
  Company Number: PHHY2008GB13597

PATIENT
  Sex: Female

DRUGS (7)
  1. CLOZARIL [Suspect]
     Indication: SCHIZOPHRENIA
     Dosage: 500 MG/DAY
     Route: 048
     Dates: start: 20050601, end: 20060101
  2. CLOZARIL [Suspect]
     Dosage: UNK
     Dates: start: 20070809
  3. LACTULOSE [Concomitant]
     Dosage: 10 ML/DAY
     Route: 048
  4. ADCAL-D3 [Concomitant]
  5. OMEPRAZOLE [Concomitant]
     Dosage: 20 MG/DAY
     Route: 048
  6. MIRTAZAPINE [Concomitant]
     Dosage: 45 MG/DAY
     Route: 048
  7. HYOSCINE HBR HYT [Concomitant]
     Dosage: 300 UG/DAY
     Route: 048

REACTIONS (23)
  - ABDOMINAL DISCOMFORT [None]
  - ABDOMINAL PAIN [None]
  - ACUTE ABDOMEN [None]
  - ADRENAL DISORDER [None]
  - COLOSTOMY [None]
  - CONJUNCTIVAL OEDEMA [None]
  - CONSTIPATION [None]
  - INFLAMMATION [None]
  - INTESTINAL FUNCTIONAL DISORDER [None]
  - LAPAROTOMY [None]
  - LARGE INTESTINE PERFORATION [None]
  - LUNG DISORDER [None]
  - METABOLIC ACIDOSIS [None]
  - OEDEMA MUCOSAL [None]
  - PALLOR [None]
  - PANCREATIC DISORDER [None]
  - PERIORBITAL OEDEMA [None]
  - PERITONITIS [None]
  - PLEURAL EFFUSION [None]
  - PULMONARY OEDEMA [None]
  - RESECTION OF RECTUM [None]
  - SEPSIS [None]
  - SEPTIC SHOCK [None]
